FAERS Safety Report 4503243-1 (Version None)
Quarter: 2004Q4

REPORT INFORMATION
  Report Type: 
  Country: None (occurrence: None)
  Receive Date: 20041112
  Receipt Date: 20041101
  Transmission Date: 20050328
  Serious: Yes (Other)
  Sender: FDA-Public Use
  Company Number: 2004086823

PATIENT
  Age: 23 Year
  Sex: Female
  Weight: 52 kg

DRUGS (6)
  1. VORICONAZOLE (VORICONAZOLE) [Suspect]
     Indication: ASTHMA
     Dosage: 300 MG, (150 MG, 2 IN 1 D), ORAL
     Route: 048
     Dates: start: 20040925
  2. SERETIDE MITE (FLUTICASONE PROPIONATE, SALMETEROL XINAFOATE) [Concomitant]
  3. FLUTICASONE PROPIONATE [Concomitant]
  4. PREDNISOLONE [Concomitant]
  5. SALBUTAMOL (SALBUTAMOL) [Concomitant]
  6. MONTELUKAST SODIUM (MONTELUKAST) [Concomitant]

REACTIONS (8)
  - ARTHRALGIA [None]
  - CHEST PAIN [None]
  - COORDINATION ABNORMAL [None]
  - DIZZINESS [None]
  - HEADACHE [None]
  - SOMNOLENCE [None]
  - VISUAL DISTURBANCE [None]
  - VOMITING [None]
